FAERS Safety Report 10674314 (Version 1)
Quarter: 2014Q4

REPORT INFORMATION
  Report Type: Spontaneous
  Country: CZ (occurrence: None)
  Receive Date: 20141222
  Receipt Date: 20141222
  Transmission Date: 20150529
  Serious: Yes (Hospitalization)
  Sender: FDA-Public Use
  Company Number: FK201406332

PATIENT
  Sex: Male

DRUGS (3)
  1. CYCLOPHOSPHAMIDE. [Suspect]
     Active Substance: CYCLOPHOSPHAMIDE
     Indication: ERDHEIM-CHESTER DISEASE
     Dosage: 150 MG/M2, DAY 1 TO DAYS 5 (7 CYCLE REPEATED MONTHLY), INTRAVENOUS (NOT OTHER SPECIFIED)
     Route: 042
     Dates: start: 20091013, end: 201006
  2. DEXAMETHASONE. [Suspect]
     Active Substance: DEXAMETHASONE
     Indication: ERDHEIM-CHESTER DISEASE
     Dosage: 24 MG, DAY 1 TO DAY 5 (7 CYCLE REPEATED MONTHLY), INTRAVENOUS (NOT OTHERWISE SPECIFIED)
     Route: 042
     Dates: start: 20091013, end: 201006
  3. LITAK [Suspect]
     Active Substance: CLADRIBINE
     Indication: ERDHEIM-CHESTER DISEASE
     Dosage: 5 MG/M2, DAY 1 TO DAY 5 (7CYCLE REPEATED MONTHLY), SUBCUTANEOUS
     Route: 058
     Dates: start: 20091013, end: 201006

REACTIONS (6)
  - Cytopenia [None]
  - Toxicity to various agents [None]
  - Bone marrow failure [None]
  - Immunodeficiency [None]
  - Herpes zoster [None]
  - Disease recurrence [None]
